FAERS Safety Report 4776613-4 (Version None)
Quarter: 2005Q3

REPORT INFORMATION
  Report Type: 
  Country: None (occurrence: None)
  Receive Date: 20050921
  Receipt Date: 20050907
  Transmission Date: 20060218
  Serious: Yes (Other)
  Sender: FDA-Public Use
  Company Number: USA050598849

PATIENT
  Age: 77 Year
  Sex: Female

DRUGS (1)
  1. FORTEO [Suspect]
     Indication: OSTEOPOROSIS
     Dates: start: 20050401

REACTIONS (7)
  - CHEST PAIN [None]
  - DYSPNOEA [None]
  - HEART RATE IRREGULAR [None]
  - METASTASES TO LYMPH NODES [None]
  - PHARMACEUTICAL PRODUCT COMPLAINT [None]
  - SMALL CELL LUNG CANCER STAGE UNSPECIFIED [None]
  - WRONG TECHNIQUE IN DRUG USAGE PROCESS [None]
